FAERS Safety Report 13897157 (Version 2)
Quarter: 2018Q3

REPORT INFORMATION
  Report Type: Spontaneous
  Country: US (occurrence: US)
  Receive Date: 20170823
  Receipt Date: 20180827
  Transmission Date: 20181010
  Serious: Yes (Hospitalization)
  Sender: FDA-Public Use
  Company Number: US-PFIZER INC-2017357138

PATIENT
  Age: 69 Year
  Sex: Male

DRUGS (1)
  1. DESMOPRESSIN ACETATE. [Suspect]
     Active Substance: DESMOPRESSIN ACETATE
     Indication: DIABETES INSIPIDUS
     Dosage: 10 MCG TWICE DAILY
     Route: 045

REACTIONS (2)
  - Osmotic demyelination syndrome [Recovered/Resolved]
  - Hyponatraemia [Recovered/Resolved]
